FAERS Safety Report 7458748-0 (Version None)
Quarter: 2011Q2

REPORT INFORMATION
  Report Type: 
  Country: None (occurrence: None)
  Receive Date: 20110504
  Receipt Date: 20110428
  Transmission Date: 20111010
  Serious: Yes (Other)
  Sender: FDA-Public Use
  Company Number: PHHY2011IT35572

PATIENT
  Sex: Male

DRUGS (1)
  1. PACLITAXEL [Suspect]
     Indication: NON-SMALL CELL LUNG CANCER STAGE IIIB
     Dosage: 350 MG, CYCLIC
     Route: 042
     Dates: start: 20101217

REACTIONS (2)
  - ARTHRALGIA [None]
  - TONGUE DISORDER [None]
